FAERS Safety Report 12087122 (Version 1)
Quarter: 2016Q1

REPORT INFORMATION
  Report Type: Spontaneous
  Country: US (occurrence: US)
  Receive Date: 20160217
  Receipt Date: 20160217
  Transmission Date: 20160526
  Serious: No
  Sender: FDA-Public Use
  Company Number: US-BIOMARINAP-US-2016-108907

PATIENT
  Sex: Female
  Weight: 19 kg

DRUGS (1)
  1. VIMIZIM [Suspect]
     Active Substance: ELOSULFASE ALFA
     Indication: PRODUCT USED FOR UNKNOWN INDICATION
     Dosage: UNK, QW
     Route: 042
     Dates: start: 20141210

REACTIONS (4)
  - Vomiting [Unknown]
  - Malaise [Unknown]
  - Gastroenteritis viral [Unknown]
  - Nausea [Unknown]
